FAERS Safety Report 13389095 (Version 1)
Quarter: 2017Q1

REPORT INFORMATION
  Report Type: Spontaneous
  Country: AR (occurrence: AR)
  Receive Date: 20170330
  Receipt Date: 20170330
  Transmission Date: 20170429
  Serious: Yes (Death, Hospitalization, Other)
  Sender: FDA-Public Use
  Company Number: AR-BRISTOL-MYERS SQUIBB COMPANY-BMS-2017-025946

PATIENT
  Age: 65 Year
  Sex: Female

DRUGS (2)
  1. APIXABAN [Suspect]
     Active Substance: APIXABAN
     Indication: PULMONARY EMBOLISM
     Dosage: 5 MG, UNK
     Route: 065
  2. ENBREL [Concomitant]
     Active Substance: ETANERCEPT
     Indication: THROMBOSIS
     Route: 065

REACTIONS (8)
  - Gastrointestinal neoplasm [Fatal]
  - Pulmonary embolism [Fatal]
  - Pancreatic neoplasm [Fatal]
  - Renal impairment [Fatal]
  - Pulmonary function test decreased [Fatal]
  - Adverse event [Fatal]
  - Biliary neoplasm [Fatal]
  - Surgery [Unknown]

NARRATIVE: CASE EVENT DATE: 201612
